FAERS Safety Report 10601772 (Version 1)
Quarter: 2014Q4

REPORT INFORMATION
  Report Type: Spontaneous
  Country: US (occurrence: None)
  Receive Date: 20141121
  Receipt Date: 20141121
  Transmission Date: 20150529
  Serious: No
  Sender: FDA-Public Use
  Company Number: None

PATIENT
  Age: 44 Year
  Sex: Female

DRUGS (2)
  1. REFRESH LIQUIGEL [Suspect]
     Active Substance: CARBOXYMETHYLCELLULOSE SODIUM
     Indication: DRY EYE
     Dosage: 1-2 DROPS, INTO THE EYE
     Dates: start: 20141104, end: 20141120
  2. REFRESH LIQUIGEL [Suspect]
     Active Substance: CARBOXYMETHYLCELLULOSE SODIUM
     Indication: SJOGREN^S SYNDROME
     Dosage: 1-2 DROPS, INTO THE EYE
     Dates: start: 20141104, end: 20141120

REACTIONS (3)
  - Foreign body in eye [None]
  - Foreign body sensation in eyes [None]
  - Product contamination physical [None]

NARRATIVE: CASE EVENT DATE: 20141120
